FAERS Safety Report 9343220 (Version 1)
Quarter: 2013Q2

REPORT INFORMATION
  Report Type: Spontaneous
  Country: US (occurrence: US)
  Receive Date: 20130611
  Receipt Date: 20130611
  Transmission Date: 20140414
  Serious: Yes (Hospitalization)
  Sender: FDA-Public Use
  Company Number: US-B.I. PHARMACEUTICALS,INC./RIDGEFIELD-2013-BI-16163BP

PATIENT
  Age: 65 Year
  Sex: Female

DRUGS (5)
  1. COMBIVENT [Suspect]
     Indication: CHRONIC OBSTRUCTIVE PULMONARY DISEASE
     Dosage: STRENGTH: 18 MCG / 103 MCG;
     Route: 055
     Dates: start: 2008
  2. COMBIVENT [Suspect]
     Indication: CHRONIC OBSTRUCTIVE PULMONARY DISEASE
     Dosage: STRENGTH: 20 MCG / 100 MCG; DAILY DOSE: 80 MCG/400 MCG
     Route: 055
     Dates: start: 20130601
  3. OXYCODONE [Concomitant]
     Indication: PAIN
     Dosage: 6 ANZ
     Route: 048
     Dates: start: 2005
  4. SHOTS IN SHOULDERS [Concomitant]
     Indication: PAIN
     Route: 030
     Dates: start: 2005
  5. MORPHINE [Concomitant]
     Indication: PAIN
     Route: 048
     Dates: start: 1998, end: 2005

REACTIONS (6)
  - Hip fracture [Recovered/Resolved]
  - Dehydration [Recovered/Resolved]
  - Fall [Recovered/Resolved with Sequelae]
  - Dyspnoea [Not Recovered/Not Resolved]
  - Cataract [Not Recovered/Not Resolved]
  - Ankle fracture [Recovered/Resolved]
